FAERS Safety Report 19521621 (Version 1)
Quarter: 2021Q3

REPORT INFORMATION
  Report Type: Spontaneous
  Country: US (occurrence: US)
  Receive Date: 20210713
  Receipt Date: 20210713
  Transmission Date: 20211014
  Serious: Yes (Other)
  Sender: FDA-Public Use
  Company Number: US-AMGEN-USASP2021104372

PATIENT
  Age: 69 Year
  Sex: Female

DRUGS (2)
  1. LUTETIUM (177LU) DOTATATE [Concomitant]
     Active Substance: LUTETIUM OXODOTREOTIDE LU-177
     Dosage: UNK
     Dates: start: 201904
  2. XGEVA [Suspect]
     Active Substance: DENOSUMAB
     Indication: METASTASES TO BONE
     Dosage: UNK, QMO
     Route: 065

REACTIONS (6)
  - Spinal cord compression [Unknown]
  - Fatigue [Recovering/Resolving]
  - Paraganglion neoplasm malignant [Unknown]
  - Spondylolysis [Unknown]
  - Blood folate increased [Unknown]
  - Osteosclerosis [Unknown]
